FAERS Safety Report 5753330-5 (Version None)
Quarter: 2008Q2

REPORT INFORMATION
  Report Type: 
  Country: None (occurrence: None)
  Receive Date: 20080527
  Receipt Date: 20080516
  Transmission Date: 20081010
  Serious: Yes (Death)
  Sender: FDA-Public Use
  Company Number: 2008-174279-NL

PATIENT
  Sex: Male

DRUGS (4)
  1. ROCURONIUM BROMIDE [Suspect]
     Route: 042
     Dates: start: 20080318, end: 20080318
  2. PROPOFOL [Suspect]
     Route: 042
  3. EPHEDRINE HYDROCHLORIDE [Suspect]
  4. REMIFENTANIL HYDROCHLORIDE [Concomitant]

REACTIONS (4)
  - BLOOD PRESSURE DECREASED [None]
  - CARDIAC FAILURE [None]
  - SHOCK [None]
  - TACHYCARDIA [None]
